FAERS Safety Report 11648195 (Version 10)
Quarter: 2017Q2

REPORT INFORMATION
  Report Type: Report from Study
  Country: US (occurrence: US)
  Receive Date: 20151021
  Receipt Date: 20170403
  Transmission Date: 20170829
  Serious: Yes (Hospitalization)
  Sender: FDA-Public Use
  Company Number: US-JNJFOC-20151004114

PATIENT
  Age: 59 Year
  Sex: Male

DRUGS (19)
  1. DIFLUCAN [Interacting]
     Active Substance: FLUCONAZOLE
     Indication: PNEUMONIA CRYPTOCOCCAL
  2. IMBRUVICA [Suspect]
     Active Substance: IBRUTINIB
     Indication: WALDENSTROM^S MACROGLOBULINAEMIA
     Route: 048
     Dates: end: 2016
  3. IMBRUVICA [Suspect]
     Active Substance: IBRUTINIB
     Indication: WALDENSTROM^S MACROGLOBULINAEMIA
     Route: 048
     Dates: start: 20160303
  4. CELEXA [Concomitant]
     Active Substance: CITALOPRAM HYDROBROMIDE
  5. PREDNISONE. [Concomitant]
     Active Substance: PREDNISONE
     Indication: WALDENSTROM^S MACROGLOBULINAEMIA
     Route: 048
     Dates: start: 20150513
  6. LACTOBACILLUS ACIDOPHILUS [Concomitant]
     Active Substance: LACTOBACILLUS ACIDOPHILUS
  7. KETOCONAZOLE. [Concomitant]
     Active Substance: KETOCONAZOLE
  8. LOSARTAN. [Concomitant]
     Active Substance: LOSARTAN
  9. CLOBETASOL [Concomitant]
     Active Substance: CLOBETASOL
  10. ALLEGRA [Concomitant]
     Active Substance: FEXOFENADINE HYDROCHLORIDE
  11. AMOXIL [Concomitant]
     Active Substance: AMOXICILLIN
  12. PEPCID [Concomitant]
     Active Substance: FAMOTIDINE
  13. IMBRUVICA [Suspect]
     Active Substance: IBRUTINIB
     Indication: WALDENSTROM^S MACROGLOBULINAEMIA
     Route: 048
     Dates: start: 20160123
  14. ATARAX [Concomitant]
     Active Substance: HYDROXYZINE HYDROCHLORIDE
  15. SINGULAIR [Concomitant]
     Active Substance: MONTELUKAST SODIUM
  16. COLCHICINE. [Concomitant]
     Active Substance: COLCHICINE
  17. ALLOPURINOL. [Concomitant]
     Active Substance: ALLOPURINOL
  18. IMBRUVICA [Suspect]
     Active Substance: IBRUTINIB
     Indication: WALDENSTROM^S MACROGLOBULINAEMIA
     Route: 048
     Dates: start: 20150513, end: 20150921
  19. CITALOPRAM [Concomitant]
     Active Substance: CITALOPRAM HYDROBROMIDE

REACTIONS (10)
  - Lung infiltration [Recovered/Resolved]
  - Drug interaction [Unknown]
  - Petechiae [Recovering/Resolving]
  - Arthralgia [Unknown]
  - Diarrhoea [Unknown]
  - Pneumonia cryptococcal [Recovered/Resolved]
  - Hypertension [Unknown]
  - Chondrocalcinosis pyrophosphate [Recovering/Resolving]
  - Oedema [Unknown]
  - Cryptococcal fungaemia [Recovering/Resolving]

NARRATIVE: CASE EVENT DATE: 201509
